FAERS Safety Report 12531256 (Version 1)
Quarter: 2016Q3

REPORT INFORMATION
  Report Type: Report from Study
  Country: JP (occurrence: JP)
  Receive Date: 20160706
  Receipt Date: 20160706
  Transmission Date: 20161109
  Serious: Yes (Death)
  Sender: FDA-Public Use
  Company Number: JP-SA-2016SA123535

PATIENT
  Age: 47 Year
  Sex: Male
  Weight: 102.9 kg

DRUGS (12)
  1. LOXONIN [Concomitant]
     Active Substance: LOXOPROFEN SODIUM
     Indication: PROPHYLAXIS
     Dates: start: 20121117, end: 20121206
  2. CRESTOR [Concomitant]
     Active Substance: ROSUVASTATIN CALCIUM
     Indication: UNEVALUABLE EVENT
     Dates: end: 20121226
  3. PL COMBINATION GRANULE [Concomitant]
     Indication: PROPHYLAXIS
     Dates: start: 20121025, end: 20121219
  4. PLAVIX [Suspect]
     Active Substance: CLOPIDOGREL BISULFATE
     Indication: CEREBROVASCULAR ACCIDENT
     Route: 065
     Dates: end: 20121004
  5. OLMETEC [Concomitant]
     Active Substance: OLMESARTAN MEDOXOMIL
     Indication: UNEVALUABLE EVENT
     Dates: start: 20121020, end: 20121226
  6. LAXOBERON [Concomitant]
     Active Substance: SODIUM PICOSULFATE
     Indication: UNEVALUABLE EVENT
     Dates: end: 20121227
  7. VEEN-F [Concomitant]
     Indication: PROPHYLAXIS
     Dosage: FLUID SOLUTION
     Dates: start: 20121215, end: 20121215
  8. PLAVIX [Suspect]
     Active Substance: CLOPIDOGREL BISULFATE
     Indication: CEREBROVASCULAR ACCIDENT
     Route: 065
     Dates: start: 20121005, end: 20121226
  9. METGLUCO [Concomitant]
     Active Substance: METFORMIN HYDROCHLORIDE
     Indication: UNEVALUABLE EVENT
     Dates: end: 20121226
  10. NEGMIN [Concomitant]
     Indication: PROPHYLAXIS
     Dates: start: 20121101, end: 20121227
  11. CRAVIT [Concomitant]
     Active Substance: LEVOFLOXACIN
     Indication: PROPHYLAXIS
     Dates: start: 20121025, end: 20121212
  12. BIOFERMIN [Concomitant]
     Active Substance: BACILLUS SUBTILIS\LACTOBACILLUS ACIDOPHILUS\STREPTOCOCCUS FAECAIS
     Indication: PROPHYLAXIS
     Dates: start: 20121222, end: 20121224

REACTIONS (1)
  - Death [Fatal]

NARRATIVE: CASE EVENT DATE: 20121227
